FAERS Safety Report 20098375 (Version 3)
Quarter: 2022Q1

REPORT INFORMATION
  Report Type: Spontaneous
  Country: CN (occurrence: CN)
  Receive Date: 20211122
  Receipt Date: 20220112
  Transmission Date: 20220423
  Serious: Yes (Hospitalization, Other)
  Sender: FDA-Public Use
  Company Number: CN-CELGENE-CHN-20211104285

PATIENT
  Age: 68 Year
  Sex: Male
  Weight: 62.8 kg

DRUGS (3)
  1. ABRAXANE [Suspect]
     Active Substance: PACLITAXEL
     Indication: Lung neoplasm malignant
     Dosage: 140 MILLIGRAM
     Route: 041
     Dates: start: 20210922, end: 20210930
  2. CISPLATIN [Suspect]
     Active Substance: CISPLATIN
     Indication: Lung neoplasm malignant
     Dosage: 50 MILLIGRAM
     Route: 041
     Dates: start: 20210922, end: 20210930
  3. CAMRELIZUMAB [Concomitant]
     Active Substance: CAMRELIZUMAB
     Indication: Product used for unknown indication
     Dosage: 200 MILLIGRAM
     Route: 041
     Dates: start: 20210922, end: 20210922

REACTIONS (1)
  - Neurotoxicity [Not Recovered/Not Resolved]

NARRATIVE: CASE EVENT DATE: 20210930
